FAERS Safety Report 20408849 (Version 5)
Quarter: 2025Q2

REPORT INFORMATION
  Report Type: Report from Study
  Country: DE (occurrence: DE)
  Receive Date: 20220201
  Receipt Date: 20250423
  Transmission Date: 20250717
  Serious: Yes (Hospitalization, Other)
  Sender: AUROBINDO
  Company Number: DE-PFIZER INC-202200051277

PATIENT
  Age: 9 Day
  Sex: Male

DRUGS (8)
  1. VORICONAZOLE [Suspect]
     Active Substance: VORICONAZOLE
     Indication: Aspergillus infection
     Dosage: 5 MILLIGRAM/KILOGRAM, ONCE A DAY
     Route: 065
  2. VORICONAZOLE [Suspect]
     Active Substance: VORICONAZOLE
     Indication: Hypotension
     Dosage: 6 MILLIGRAM/KILOGRAM, ONCE A DAY (Q12, LOADING DOSE,D1)
     Route: 065
  3. VORICONAZOLE [Suspect]
     Active Substance: VORICONAZOLE
     Dosage: 4 MILLIGRAM/KILOGRAM, ONCE A DAY (Q12, FROM DAY 2)
     Route: 065
  4. VORICONAZOLE [Suspect]
     Active Substance: VORICONAZOLE
     Dosage: 12 MILLIGRAM/KILOGRAM,(6 MILLIGRAM/KILOGRAM, BID LOADING DOSE) ONCE A DAY (6 MILLIGRAM/KILOGRAM, BID
     Route: 065
  5. VORICONAZOLE [Suspect]
     Active Substance: VORICONAZOLE
     Dosage: 10 MILLIGRAM/KILOGRAM (5 MILLIGRAM/KILOGRAM, BID), ONCE A DAY
     Route: 065
  6. VORICONAZOLE [Suspect]
     Active Substance: VORICONAZOLE
     Dosage: 8 MILLIGRAM/KILOGRAM,(4 MILLIGRAM/KILOGRAM, BID DOSE FROM DAY 2) ONCE A DAY
     Route: 065
  7. BETAMETHASONE [Suspect]
     Active Substance: BETAMETHASONE
     Indication: Product used for unknown indication
     Route: 064
  8. HYDROCORTISONE [Suspect]
     Active Substance: HYDROCORTISONE
     Indication: Hypotension
     Route: 065

REACTIONS (5)
  - Aspergillus infection [Recovered/Resolved]
  - Foetal exposure during pregnancy [Recovered/Resolved]
  - Hepatotoxicity [Recovered/Resolved]
  - Drug-induced liver injury [Recovered/Resolved]
  - Product use issue [Unknown]
